FAERS Safety Report 5618639-4 (Version None)
Quarter: 2008Q1

REPORT INFORMATION
  Report Type: 
  Country: None (occurrence: None)
  Receive Date: 20080207
  Receipt Date: 20080129
  Transmission Date: 20080703
  Serious: Yes (Hospitalization)
  Sender: FDA-Public Use
  Company Number: US-JNJFOC-20080107401

PATIENT
  Sex: Female
  Weight: 74.39 kg

DRUGS (7)
  1. FENTANYL TRANSDERMAL SYSTEM [Suspect]
     Route: 062
  2. FENTANYL TRANSDERMAL SYSTEM [Suspect]
     Indication: ARTHRALGIA
     Route: 062
  3. CLONIDINE [Concomitant]
     Indication: HYPERTENSION
     Route: 048
  4. VERAPAMIL [Concomitant]
     Indication: HYPERTENSION
     Dosage: AT BEDTIME
     Route: 048
  5. MICARDIS HCT [Concomitant]
     Indication: HYPERTENSION
     Dosage: 80/25MG
     Route: 048
  6. IRON [Concomitant]
     Indication: HAEMOGLOBIN DECREASED
     Route: 048
  7. ARIXTRA [Concomitant]
     Indication: THROMBOSIS PROPHYLAXIS
     Route: 058

REACTIONS (4)
  - CHILLS [None]
  - HYPERHIDROSIS [None]
  - JOINT DISLOCATION [None]
  - OFF LABEL USE [None]
